FAERS Safety Report 21145338 (Version 1)
Quarter: 2022Q3

REPORT INFORMATION
  Report Type: Spontaneous
  Country: DE (occurrence: DE)
  Receive Date: 20220729
  Receipt Date: 20220729
  Transmission Date: 20221026
  Serious: Yes (Hospitalization, Other)
  Sender: FDA-Public Use
  Company Number: None

PATIENT
  Age: 66 Year
  Sex: Male
  Weight: 80 kg

DRUGS (5)
  1. BISOPROLOL [Interacting]
     Active Substance: BISOPROLOL
     Indication: Product used for unknown indication
     Dosage: STRENGTH  :5MG
     Route: 065
  2. PANTOPRAZOLE [Interacting]
     Active Substance: PANTOPRAZOLE
     Indication: Product used for unknown indication
     Dosage: STRENGTH  :20MG
     Route: 065
  3. ROSUVASTATIN [Interacting]
     Active Substance: ROSUVASTATIN
     Indication: Product used for unknown indication
     Dosage: STRENGTH  :10MG
     Route: 065
  4. ASPIRIN [Interacting]
     Active Substance: ASPIRIN
     Indication: Product used for unknown indication
     Route: 065
  5. XARELTO [Interacting]
     Active Substance: RIVAROXABAN
     Indication: Anticoagulant therapy
     Dosage: STRENGTH: 20 MG
     Route: 065

REACTIONS (12)
  - Syncope [Unknown]
  - Muscle haemorrhage [Unknown]
  - Myelodysplastic syndrome [Unknown]
  - Leukopenia [Unknown]
  - Blood pressure decreased [Unknown]
  - Asthenia [Unknown]
  - Red blood cell count decreased [Unknown]
  - Soft tissue haemorrhage [Unknown]
  - Dyspnoea [Unknown]
  - Pallor [Unknown]
  - Anaemia macrocytic [Unknown]
  - Drug interaction [Unknown]

NARRATIVE: CASE EVENT DATE: 20210101
